FAERS Safety Report 6726124-1 (Version None)
Quarter: 2010Q2

REPORT INFORMATION
  Report Type: 
  Country: None (occurrence: None)
  Receive Date: 20100514
  Receipt Date: 20100505
  Transmission Date: 20101027
  Serious: Yes (Other)
  Sender: FDA-Public Use
  Company Number: AU-AMGEN-QUU389238

PATIENT

DRUGS (1)
  1. NEUPOGEN [Suspect]
     Indication: AGRANULOCYTOSIS

REACTIONS (3)
  - CHRONIC LYMPHOCYTIC LEUKAEMIA [None]
  - NON-HODGKIN'S LYMPHOMA [None]
  - PERFORMANCE STATUS DECREASED [None]
